FAERS Safety Report 16504851 (Version 1)
Quarter: 2019Q3

REPORT INFORMATION
  Report Type: Spontaneous
  Country: US (occurrence: US)
  Receive Date: 20190701
  Receipt Date: 20190701
  Transmission Date: 20191004
  Serious: No
  Sender: FDA-Public Use
  Company Number: US-PFM-2018-05885

PATIENT
  Age: 4 Month
  Sex: Female
  Weight: 4.91 kg

DRUGS (3)
  1. HEMANGEOL [Suspect]
     Active Substance: PROPRANOLOL HYDROCHLORIDE
     Dosage: 1.2 ML, BID (2/DAY), WITH FOOD
     Route: 048
  2. HEMANGEOL [Suspect]
     Active Substance: PROPRANOLOL HYDROCHLORIDE
     Indication: PRODUCT USED FOR UNKNOWN INDICATION
     Dosage: 0.6 ML, BID (2/DAY), WITH FOOD
     Route: 048
     Dates: start: 20180412
  3. HEMANGEOL [Suspect]
     Active Substance: PROPRANOLOL HYDROCHLORIDE
     Dosage: 1.6 ML, BID (2/DAY), WITH FOOD
     Route: 048

REACTIONS (3)
  - Gastrooesophageal reflux disease [Unknown]
  - Cough [Unknown]
  - Abdominal discomfort [Unknown]
